FAERS Safety Report 5897089-X (Version None)
Quarter: 2008Q3

REPORT INFORMATION
  Report Type: 
  Country: None (occurrence: None)
  Receive Date: 20080924
  Receipt Date: 20080626
  Transmission Date: 20090109
  Serious: Yes (Other)
  Sender: FDA-Public Use
  Company Number: US-ASTRAZENECA-2008UW13078

PATIENT
  Age: 34 Year
  Sex: Female

DRUGS (14)
  1. SEROQUEL [Suspect]
     Route: 048
  2. LAMICTAL [Concomitant]
  3. AMBIEN CR [Concomitant]
  4. CATAPRES [Concomitant]
  5. LOPRESSOR [Concomitant]
  6. DARVOCET [Concomitant]
  7. ACCUPRIL [Concomitant]
  8. RENAGAL [Concomitant]
  9. VALSARTAN [Concomitant]
  10. SENSIPAR [Concomitant]
  11. NEURONTIN [Concomitant]
  12. PREVACID [Concomitant]
  13. LOMOTIL [Concomitant]
  14. PHERNERGAN [Concomitant]

REACTIONS (1)
  - TARDIVE DYSKINESIA [None]
